FAERS Safety Report 9068204 (Version 1)
Quarter: 2013Q1

REPORT INFORMATION
  Report Type: Spontaneous
  Country: US (occurrence: US)
  Receive Date: 20130215
  Receipt Date: 20130215
  Transmission Date: 20140127
  Serious: No
  Sender: FDA-Public Use
  Company Number: US-BIOGENIDEC-2013BI013298

PATIENT
  Age: 80 None
  Sex: Male

DRUGS (1)
  1. AVONEX [Suspect]
     Indication: MULTIPLE SCLEROSIS
     Route: 030
     Dates: start: 19950801

REACTIONS (3)
  - Mobility decreased [Not Recovered/Not Resolved]
  - Therapy cessation [Recovered/Resolved]
  - Drug dose omission [Recovered/Resolved]
